FAERS Safety Report 9633133 (Version 1)
Quarter: 2013Q4

REPORT INFORMATION
  Report Type: Spontaneous
  Country: US (occurrence: US)
  Receive Date: 20131019
  Receipt Date: 20131019
  Transmission Date: 20140711
  Serious: No
  Sender: FDA-Public Use
  Company Number: US-B.I. PHARMACEUTICALS,INC./RIDGEFIELD-2013-BI-32464BP

PATIENT
  Sex: Male

DRUGS (1)
  1. GILOTRIF [Suspect]
     Indication: NON-SMALL CELL LUNG CANCER METASTATIC
     Dosage: STRENGTH: 40 MG; DAILY DOSE: 40 MG
     Route: 048
     Dates: start: 201306

REACTIONS (1)
  - Limb injury [Not Recovered/Not Resolved]
